FAERS Safety Report 5453853-2 (Version None)
Quarter: 2007Q3

REPORT INFORMATION
  Report Type: 
  Country: None (occurrence: None)
  Receive Date: 20070917
  Receipt Date: 20070914
  Transmission Date: 20080115
  Serious: Yes (Other)
  Sender: FDA-Public Use
  Company Number: B0462822A

PATIENT
  Age: 76 Year
  Sex: Male

DRUGS (3)
  1. AVANDIA [Suspect]
     Route: 065
     Dates: start: 20041001
  2. NOVONORM [Concomitant]
     Route: 065
  3. PLAVIX [Concomitant]
     Route: 065
     Dates: start: 20041001

REACTIONS (1)
  - ANAEMIA MACROCYTIC [None]
